FAERS Safety Report 6361561-9 (Version None)
Quarter: 2009Q3

REPORT INFORMATION
  Report Type: 
  Country: None (occurrence: None)
  Receive Date: 20090918
  Receipt Date: 20090908
  Transmission Date: 20100115
  Serious: Yes (Hospitalization, Other)
  Sender: FDA-Public Use
  Company Number: JP-PFIZER INC-2009268165

PATIENT
  Age: 52 Year

DRUGS (2)
  1. VIAGRA [Suspect]
     Route: 048
  2. ASPIRIN [Concomitant]
     Route: 048

REACTIONS (2)
  - ARTERY DISSECTION [None]
  - HEMIPLEGIA [None]
